FAERS Safety Report 23141789 (Version 2)
Quarter: 2024Q3

REPORT INFORMATION
  Report Type: Spontaneous
  Country: US (occurrence: US)
  Receive Date: 20231103
  Receipt Date: 20240912
  Transmission Date: 20241016
  Serious: Yes (Life-Threatening, Hospitalization, Other)
  Sender: HETERO
  Company Number: US-HETERO-HET2023US03081

PATIENT
  Age: 95 Year
  Sex: Female

DRUGS (1)
  1. ALLOPURINOL [Suspect]
     Active Substance: ALLOPURINOL
     Indication: Gout
     Dosage: 100 MILLIGRAM, QD
     Route: 048

REACTIONS (7)
  - Acute kidney injury [Unknown]
  - Visual impairment [Recovering/Resolving]
  - Staphylococcal bacteraemia [Unknown]
  - Cellulitis staphylococcal [Unknown]
  - Stevens-Johnson syndrome [Recovered/Resolved]
  - Toxic epidermal necrolysis [Unknown]
  - Incorrect dose administered [Unknown]
